FAERS Safety Report 6945036-1 (Version None)
Quarter: 2010Q3

REPORT INFORMATION
  Report Type: 
  Country: None (occurrence: None)
  Receive Date: 20100827
  Receipt Date: 20100726
  Transmission Date: 20110219
  Serious: Yes (Death)
  Sender: FDA-Public Use
  Company Number: US-BAYER-201031643NA

PATIENT
  Sex: Female

DRUGS (1)
  1. BETASERON [Suspect]
     Indication: PRIMARY PROGRESSIVE MULTIPLE SCLEROSIS
     Route: 058
     Dates: start: 20090611

REACTIONS (1)
  - DEATH [None]
